FAERS Safety Report 6663846-5 (Version None)
Quarter: 2010Q2

REPORT INFORMATION
  Report Type: 
  Country: None (occurrence: None)
  Receive Date: 20100401
  Receipt Date: 20100324
  Transmission Date: 20101027
  Serious: No
  Sender: FDA-Public Use
  Company Number: US-JNJFOC-20071107362

PATIENT
  Sex: Male
  Weight: 73.5 kg

DRUGS (7)
  1. INFLIXIMAB [Suspect]
     Indication: COLITIS ULCERATIVE
     Route: 042
  2. INFLIXIMAB [Suspect]
     Route: 042
  3. INFLIXIMAB [Suspect]
     Route: 042
  4. INFLIXIMAB [Suspect]
     Route: 042
  5. PREDNISONE [Concomitant]
     Indication: COLITIS ULCERATIVE
     Route: 048
  6. MERCAPTOPURINE [Concomitant]
     Indication: COLITIS ULCERATIVE
     Route: 048
  7. BENTYL [Concomitant]
     Indication: COLITIS ULCERATIVE
     Route: 048

REACTIONS (1)
  - COLITIS ULCERATIVE [None]
